FAERS Safety Report 21703035 (Version 2)
Quarter: 2022Q4

REPORT INFORMATION
  Report Type: Spontaneous
  Country: ZA (occurrence: ZA)
  Receive Date: 20221209
  Receipt Date: 20221228
  Transmission Date: 20230112
  Serious: Yes (Other)
  Sender: FDA-Public Use
  Company Number: ZA-CELLTRION INC.-2022ZA020436

PATIENT

DRUGS (12)
  1. INFLIXIMAB [Suspect]
     Active Substance: INFLIXIMAB
     Indication: Crohn^s disease
     Dosage: 500 MG IV INFUSION AT 0 WEEKS; 2 WEEKS; 6 WEEKS AND 8 WEEKLY INFUSIONS
     Route: 042
     Dates: start: 20220204, end: 20220204
  2. INFLIXIMAB [Suspect]
     Active Substance: INFLIXIMAB
     Dosage: 500 MG IV INFUSION AT 0 WEEKS; 2 WEEKS; 6 WEEKS AND 8 WEEKLY INFUSIONS
     Route: 042
     Dates: start: 20220218, end: 20220218
  3. INFLIXIMAB [Suspect]
     Active Substance: INFLIXIMAB
     Dosage: 500 MG IV INFUSION AT 0 WEEKS; 2 WEEKS; 6 WEEKS AND 8 WEEKLY INFUSIONS
     Route: 042
     Dates: start: 20220318, end: 20220318
  4. INFLIXIMAB [Suspect]
     Active Substance: INFLIXIMAB
     Dosage: 500 MG IV INFUSION AT 0 WEEKS; 2 WEEKS; 6 WEEKS AND 8 WEEKLY INFUSIONS
     Route: 042
     Dates: start: 20220520, end: 20220520
  5. INFLIXIMAB [Suspect]
     Active Substance: INFLIXIMAB
     Dosage: 500 MG IV INFUSION AT 0 WEEKS; 2 WEEKS; 6 WEEKS AND 8 WEEKLY INFUSIONS
     Route: 042
     Dates: start: 20220715, end: 20220715
  6. INFLIXIMAB [Suspect]
     Active Substance: INFLIXIMAB
     Dosage: 500 MG IV INFUSION AT 0 WEEKS; 2 WEEKS; 6 WEEKS AND 8 WEEKLY INFUSIONS
     Route: 042
     Dates: start: 20220908, end: 20220908
  7. INFLIXIMAB [Suspect]
     Active Substance: INFLIXIMAB
     Dosage: 500 MG IV INFUSION AT 0 WEEKS; 2 WEEKS; 6 WEEKS AND 8 WEEKLY INFUSIONS
     Route: 042
     Dates: start: 20221102, end: 20221102
  8. INFLIXIMAB [Suspect]
     Active Substance: INFLIXIMAB
     Dosage: 500 MG IV INFUSION AT 0 WEEKS; 2 WEEKS; 6 WEEKS AND 8 WEEKLY INFUSIONS
     Route: 042
     Dates: start: 20221104, end: 20221104
  9. FOLIC ACID [Concomitant]
     Active Substance: FOLIC ACID
  10. METHOTREXATE [Concomitant]
     Active Substance: METHOTREXATE
  11. NEXIUM [Concomitant]
     Active Substance: ESOMEPRAZOLE MAGNESIUM
  12. VITAMIN D [Concomitant]
     Active Substance: VITAMIN D NOS

REACTIONS (3)
  - Mass [Not Recovered/Not Resolved]
  - Underdose [Unknown]
  - Off label use [Unknown]

NARRATIVE: CASE EVENT DATE: 20221104
